FAERS Safety Report 14079931 (Version 1)
Quarter: 2017Q4

REPORT INFORMATION
  Report Type: Spontaneous
  Country: RS (occurrence: RS)
  Receive Date: 20171012
  Receipt Date: 20171012
  Transmission Date: 20180321
  Serious: Yes (Hospitalization)
  Sender: FDA-Public Use
  Company Number: RS-JNJFOC-20171002521

PATIENT
  Sex: Male

DRUGS (2)
  1. XARELTO [Suspect]
     Active Substance: RIVAROXABAN
     Indication: DEEP VEIN THROMBOSIS
     Route: 048
     Dates: start: 201708
  2. MICROGENICS PROBIOTIC 8 [Concomitant]
     Active Substance: LACTOBACILLUS ACIDOPHILUS
     Indication: PNEUMONIA
     Route: 065

REACTIONS (3)
  - Hypotension [Unknown]
  - Diarrhoea haemorrhagic [Unknown]
  - Haemoglobin decreased [Unknown]

NARRATIVE: CASE EVENT DATE: 2017
